FAERS Safety Report 23402687 (Version 1)
Quarter: 2024Q1

REPORT INFORMATION
  Report Type: Spontaneous
  Country: CA (occurrence: CA)
  Receive Date: 20240115
  Receipt Date: 20240115
  Transmission Date: 20240409
  Serious: Yes (Other)
  Sender: FDA-Public Use
  Company Number: CA-ANIPHARMA-2021-CA-001851

PATIENT
  Age: 62 Year
  Sex: Male

DRUGS (10)
  1. CANDESARTAN CILEXETIL [Suspect]
     Active Substance: CANDESARTAN CILEXETIL
     Indication: Product used for unknown indication
     Dosage: 16 MG QD / DOSE TEXT: 1 EVERY 1 DAYS
     Route: 065
  2. CLOPIDOGREL BISULFATE [Concomitant]
     Active Substance: CLOPIDOGREL BISULFATE
     Dosage: 75 MG UNK
     Route: 048
  3. PEGVISOMANT [Concomitant]
     Active Substance: PEGVISOMANT
     Dosage: 10 MG QD
     Route: 058
  4. AMLODIPINE [Suspect]
     Active Substance: AMLODIPINE BESYLATE
     Dosage: 5 MG QD
     Route: 065
  5. ASPIRIN [Concomitant]
     Active Substance: ASPIRIN
     Dosage: 50 MG QD / DOSE: 80 MG QD
     Route: 048
  6. ATORVASTATIN CALCIUM [Suspect]
     Active Substance: ATORVASTATIN CALCIUM
     Dosage: 80 MG QD
     Route: 065
  7. LOSARTAN [Suspect]
     Active Substance: LOSARTAN
     Dosage: 100 MG QD
     Route: 065
  8. SANDOSTATIN [Suspect]
     Active Substance: OCTREOTIDE ACETATE
     Dosage: 20 MG QD / 20 MG QD / 20 MG QD
  9. SOMAVERT [Suspect]
     Active Substance: PEGVISOMANT
     Dosage: 20 MG QD / 10 MG QD
     Route: 058
  10. ASPIRIN [Concomitant]
     Active Substance: ASPIRIN
     Dosage: 80 MG QD
     Route: 048

REACTIONS (22)
  - Incorrect route of product administration [Unknown]
  - Injection site oedema [Unknown]
  - Injection site pain [Unknown]
  - Insulin-like growth factor increased [Unknown]
  - Limb injury [Unknown]
  - Pain [Unknown]
  - Peripheral swelling [Unknown]
  - Polyp [Unknown]
  - Tendonitis [Unknown]
  - Vital functions abnormal [Unknown]
  - Arterial occlusive disease [Unknown]
  - Weight decreased [Unknown]
  - Wound infection [Unknown]
  - Bradycardia [Unknown]
  - Blood cholesterol abnormal [Unknown]
  - Blood growth hormone increased [Unknown]
  - Blood pressure increased [Unknown]
  - Cellulitis [Unknown]
  - Chest discomfort [Unknown]
  - Fall [Unknown]
  - Gait disturbance [Unknown]
  - Heart rate decreased [Unknown]
